FAERS Safety Report 14990718 (Version 2)
Quarter: 2018Q4

REPORT INFORMATION
  Report Type: Spontaneous
  Country: US (occurrence: US)
  Receive Date: 20180608
  Receipt Date: 20181210
  Transmission Date: 20190204
  Serious: Yes (Hospitalization, Other)
  Sender: FDA-Public Use
  Company Number: US-BAUSCH-BL-2018-016047

PATIENT
  Age: 66 Year
  Sex: Male
  Weight: 68 kg

DRUGS (5)
  1. VALPROIC ACID. [Concomitant]
     Active Substance: VALPROIC ACID
     Indication: ANXIETY
     Dosage: EXTENDED RELEASE TABLET, AT BEDTIME
     Route: 065
  2. CLONAZEPAM. [Concomitant]
     Active Substance: CLONAZEPAM
     Indication: ANXIETY
     Route: 048
  3. VALPROIC ACID. [Concomitant]
     Active Substance: VALPROIC ACID
     Indication: IRRITABILITY
  4. CLONAZEPAM. [Concomitant]
     Active Substance: CLONAZEPAM
     Indication: IRRITABILITY
  5. LORAZEPAM. [Suspect]
     Active Substance: LORAZEPAM
     Indication: CATATONIA
     Dosage: FOR 3 DAYS
     Route: 042
     Dates: start: 20171118, end: 20171121

REACTIONS (1)
  - Treatment failure [Recovering/Resolving]
